FAERS Safety Report 8173298-4 (Version None)
Quarter: 2012Q1

REPORT INFORMATION
  Report Type: 
  Country: None (occurrence: None)
  Receive Date: 20120104
  Receipt Date: 20110923
  Transmission Date: 20120608
  Serious: No
  Sender: FDA-Public Use
  Company Number: 2011HGS-002575

PATIENT
  Age: 47 Year
  Sex: Female
  Weight: 136.0791 kg

DRUGS (7)
  1. BENLYSTA [Suspect]
     Indication: SYSTEMIC LUPUS ERYTHEMATOSUS
     Dosage: 1 IN 28 D, INTRAVENOUS DRIP
     Route: 041
     Dates: start: 20110610
  2. PREDNISONE [Concomitant]
  3. AMLODIPINE [Concomitant]
  4. IMURAN [Concomitant]
  5. PLAQUENIL (HYDROCXYCHLOROQUINE SULFATE) (HYDROXYCHLOROQUINE SULFATE) [Concomitant]
  6. DILANTIN (PHENYTOIN SODIUM) (PHENYTOIN SODIUM) [Concomitant]
  7. VICODIN (VICODIN) (PARACETAMOL, HYDROCODONE BITARTRATE) [Concomitant]

REACTIONS (5)
  - UNEVALUABLE EVENT [None]
  - SYSTEMIC LUPUS ERYTHEMATOSUS [None]
  - NAUSEA [None]
  - SENSATION OF FOREIGN BODY [None]
  - FATIGUE [None]
